FAERS Safety Report 4415030-3 (Version None)
Quarter: 2004Q3

REPORT INFORMATION
  Report Type: 
  Country: None (occurrence: None)
  Receive Date: 20040729
  Receipt Date: 20040719
  Transmission Date: 20050211
  Serious: Yes (Hospitalization)
  Sender: FDA-Public Use
  Company Number: 2004-07-0438

PATIENT
  Age: 58 Year
  Sex: Male

DRUGS (5)
  1. TEMODAR [Suspect]
     Indication: GLIOBLASTOMA MULTIFORME
     Dosage: 400 MG QD ORAL
     Route: 048
     Dates: start: 20040630, end: 20040701
  2. LORAZEPAM [Concomitant]
  3. ZOFRAN [Concomitant]
  4. PROCHLORPERAZINE [Concomitant]
  5. MULTI-VITAMINS [Concomitant]

REACTIONS (8)
  - AMNESIA [None]
  - CONFUSIONAL STATE [None]
  - INCONTINENCE [None]
  - MENTAL STATUS CHANGES [None]
  - MOBILITY DECREASED [None]
  - OEDEMA [None]
  - SOMNOLENCE [None]
  - SPEECH DISORDER [None]
